FAERS Safety Report 13380723 (Version 1)
Quarter: 2017Q1

REPORT INFORMATION
  Report Type: Spontaneous
  Country: US (occurrence: US)
  Receive Date: 20170328
  Receipt Date: 20170328
  Transmission Date: 20170429
  Serious: Yes (Hospitalization)
  Sender: FDA-Public Use
  Company Number: None

PATIENT
  Age: 58 Year
  Sex: Female
  Weight: 78.75 kg

DRUGS (23)
  1. VITAMINS [Concomitant]
     Active Substance: VITAMINS
  2. CALCIUM [Concomitant]
     Active Substance: CALCIUM
  3. MAGNESIUM [Concomitant]
     Active Substance: MAGNESIUM
  4. VITAMIN B12 [Concomitant]
     Active Substance: CYANOCOBALAMIN
  5. DOCUSATE SODIUM. [Concomitant]
     Active Substance: DOCUSATE SODIUM
  6. ALLERGAN [Concomitant]
     Active Substance: PAPAIN
  7. BIOTIN [Concomitant]
     Active Substance: BIOTIN
  8. PEPCID [Concomitant]
     Active Substance: FAMOTIDINE
  9. DULERA [Concomitant]
     Active Substance: FORMOTEROL FUMARATE DIHYDRATE\MOMETASONE FUROATE
  10. AZELASTINE HYDROCHLORIDE. [Concomitant]
     Active Substance: AZELASTINE HYDROCHLORIDE
  11. FOLIC ACID. [Concomitant]
     Active Substance: FOLIC ACID
  12. NORCO [Suspect]
     Active Substance: ACETAMINOPHEN\HYDROCODONE BITARTRATE
     Indication: PAIN
     Dosage: ?          QUANTITY:1 TABLET(S);?
     Route: 048
  13. SINGULAIR [Concomitant]
     Active Substance: MONTELUKAST SODIUM
  14. TRETINOIN 0.05% CREAM [Concomitant]
  15. VITAMIN D3 [Concomitant]
     Active Substance: CHOLECALCIFEROL
  16. PROAIR HFA [Concomitant]
     Active Substance: ALBUTEROL SULFATE
  17. FLUTICASONE. [Concomitant]
     Active Substance: FLUTICASONE
  18. DILAUDID HYDROMORPHONE [Concomitant]
  19. PREDNISONE. [Concomitant]
     Active Substance: PREDNISONE
  20. PERCOCET OXYCODONE ACETAMIN. [Concomitant]
  21. FLAXSEED [Concomitant]
     Active Substance: FLAX SEED
  22. 5/324 EPINSTINE OPHTHALMIC SOLUTION 0.05% [Concomitant]
  23. ACETAMINOPHEN WITH CODEINE #3 [Concomitant]

REACTIONS (4)
  - Hypoaesthesia [None]
  - Asthma [None]
  - Hypersensitivity [None]
  - Sickle cell anaemia with crisis [None]

NARRATIVE: CASE EVENT DATE: 20170219
